FAERS Safety Report 6367902-0 (Version None)
Quarter: 2009Q3

REPORT INFORMATION
  Report Type: 
  Country: None (occurrence: None)
  Receive Date: 20090922
  Receipt Date: 20070706
  Transmission Date: 20100115
  Serious: Yes (Other)
  Sender: FDA-Public Use
  Company Number: US-ASTRAZENECA-2006UW24011

PATIENT
  Age: 13506 Day
  Sex: Female
  Weight: 116.1 kg

DRUGS (12)
  1. SEROQUEL [Suspect]
     Indication: SCHIZOPHRENIA
     Dosage: 200MG 2 AT NIGHT, 3 AT NIGHT FLUCTUATING
     Route: 048
     Dates: start: 20020228
  2. SEROQUEL [Suspect]
     Indication: BIPOLAR DISORDER
     Dosage: 200MG 2 AT NIGHT, 3 AT NIGHT FLUCTUATING
     Route: 048
     Dates: start: 20020228
  3. SEROQUEL [Suspect]
     Indication: DEPRESSION
     Dosage: 200MG 2 AT NIGHT, 3 AT NIGHT FLUCTUATING
     Route: 048
     Dates: start: 20020228
  4. ZYPREXA [Suspect]
  5. ABILIFY [Concomitant]
  6. HALDOL [Concomitant]
  7. LIPITOR [Concomitant]
     Dates: start: 20030904
  8. DIAZEPAM [Concomitant]
     Dates: start: 20020228
  9. CLONAZEPAM [Concomitant]
     Dates: start: 20020418
  10. CELEXA [Concomitant]
     Dates: start: 20020718
  11. GLUCOPHAGE [Concomitant]
     Dates: start: 20000124
  12. GLUCOTROL [Concomitant]
     Dates: start: 20000124

REACTIONS (5)
  - DIABETES MELLITUS [None]
  - DIABETES MELLITUS INADEQUATE CONTROL [None]
  - DIABETIC NEUROPATHY [None]
  - NEUROLEPTIC MALIGNANT SYNDROME [None]
  - TYPE 2 DIABETES MELLITUS [None]
